FAERS Safety Report 19947396 (Version 1)
Quarter: 2021Q4

REPORT INFORMATION
  Report Type: Spontaneous
  Country: IT (occurrence: IT)
  Receive Date: 20211012
  Receipt Date: 20211012
  Transmission Date: 20220303
  Serious: Yes (Hospitalization)
  Sender: FDA-Public Use
  Company Number: None

PATIENT
  Age: 3 Year
  Sex: Male
  Weight: 12 kg

DRUGS (4)
  1. ZOLGENSMA [Suspect]
     Active Substance: ONASEMNOGENE ABEPARVOVEC-XIOI
     Indication: Spinal muscular atrophy
     Dosage: 60 ML, ONCE/SINGLE (TOTAL)
     Route: 042
     Dates: start: 20210920, end: 20210920
  2. MEROPENEM [Concomitant]
     Active Substance: MEROPENEM
     Indication: Spinal muscular atrophy
     Dosage: 240 MG
     Route: 042
     Dates: start: 20210917, end: 20210927
  3. TARGOSID [Concomitant]
     Active Substance: TEICOPLANIN
     Indication: Spinal muscular atrophy
     Dosage: UNK
     Route: 042
     Dates: start: 20210917, end: 20210927
  4. PREDNISONE [Concomitant]
     Active Substance: PREDNISONE
     Indication: Spinal muscular atrophy
     Dosage: 24 MG
     Route: 042

REACTIONS (3)
  - Pyrexia [Not Recovered/Not Resolved]
  - Rash maculo-papular [Not Recovered/Not Resolved]
  - Pruritus [Not Recovered/Not Resolved]

NARRATIVE: CASE EVENT DATE: 20210928
